FAERS Safety Report 4502460-4 (Version None)
Quarter: 2004Q4

REPORT INFORMATION
  Report Type: 
  Country: None (occurrence: None)
  Receive Date: 20041112
  Receipt Date: 20041029
  Transmission Date: 20050328
  Serious: Yes (Life-Threatening, Hospitalization)
  Sender: FDA-Public Use
  Company Number: 6011361

PATIENT
  Age: 61 Year
  Sex: Female

DRUGS (5)
  1. SOPROL (TABLETS) (BISOPROLOL FUMARATE) [Suspect]
     Dosage: 10,000 MG (10 MG, 1 IN 1 D) ORAL
     Route: 048
  2. TOCOPHEROX [Concomitant]
  3. ZEFFIX (LAMIVUDINE) [Concomitant]
  4. LASIX [Concomitant]
  5. ADEFOVIR DIPIVOXIL [Concomitant]

REACTIONS (8)
  - ATRIAL FIBRILLATION [None]
  - ISCHAEMIC CEREBRAL INFARCTION [None]
  - MALAISE [None]
  - MYOCARDIAL ISCHAEMIA [None]
  - PALPITATIONS [None]
  - PULMONARY EMBOLISM [None]
  - TACHYCARDIA [None]
  - TROPONIN INCREASED [None]
